FAERS Safety Report 5296563-7 (Version None)
Quarter: 2007Q2

REPORT INFORMATION
  Report Type: 
  Country: None (occurrence: None)
  Receive Date: 20070413
  Receipt Date: 20070405
  Transmission Date: 20071010
  Serious: Yes (Hospitalization)
  Sender: FDA-Public Use
  Company Number: US-GENENTECH-238368

PATIENT
  Sex: Male
  Weight: 41.3 kg

DRUGS (5)
  1. SOMATROPIN [Suspect]
     Indication: GROWTH RETARDATION
     Dosage: 1.6 MG, 6/WEEK
     Route: 058
     Dates: start: 20021014
  2. CLONIDINE [Concomitant]
     Indication: DRUG USE FOR UNKNOWN INDICATION
     Dosage: 50 A?G, TID
     Route: 048
     Dates: start: 20050201
  3. RISPERDAL [Concomitant]
     Indication: DRUG USE FOR UNKNOWN INDICATION
     Dosage: 0.5 MG, QHS
     Route: 048
     Dates: start: 20050201
  4. RISPERDAL [Concomitant]
     Dosage: 0.25 MG, QHS
     Route: 048
     Dates: start: 20050201
  5. ZOLOFT [Concomitant]
     Indication: DRUG USE FOR UNKNOWN INDICATION
     Dosage: 0.25 MG, QHS
     Route: 048
     Dates: start: 20050201

REACTIONS (2)
  - COLOSTOMY INFECTION [None]
  - GASTROINTESTINAL STOMA COMPLICATION [None]
